FAERS Safety Report 10391764 (Version 1)
Quarter: 2014Q3

REPORT INFORMATION
  Report Type: Spontaneous
  Country: US (occurrence: US)
  Receive Date: 20140819
  Receipt Date: 20140819
  Transmission Date: 20150326
  Serious: No
  Sender: FDA-Public Use
  Company Number: US-009507513-1408USA001293

PATIENT
  Age: 31 Year
  Sex: Female

DRUGS (4)
  1. VASOPRESSIN [Concomitant]
     Active Substance: VASOPRESSIN
  2. PIPERACILLIN AND TAZOBACTAM [Concomitant]
     Active Substance: PIPERACILLIN SODIUM\TAZOBACTAM SODIUM
  3. HYDROCORTONE [Suspect]
     Active Substance: HYDROCORTISONE
  4. NOREPINEPHRINE [Concomitant]
     Active Substance: NOREPINEPHRINE\NOREPINEPHRINE BITARTRATE

REACTIONS (1)
  - Exposure during pregnancy [Recovered/Resolved]
